FAERS Safety Report 8300242-9 (Version None)
Quarter: 2012Q2

REPORT INFORMATION
  Report Type: 
  Country: None (occurrence: None)
  Receive Date: 20120417
  Receipt Date: 20120402
  Transmission Date: 20120825
  Serious: Yes (Life-Threatening, Hospitalization)
  Sender: FDA-Public Use
  Company Number: CRC-12-126

PATIENT
  Age: 40 Year
  Sex: Female

DRUGS (4)
  1. BACLOFEN [Suspect]
     Dosage: LARGE OVERDOSE;ONCE;ORAL
     Route: 048
  2. NABUMETONE [Concomitant]
  3. DIPHENHYDRAMINE HCL [Concomitant]
  4. ALPRAZOLAM [Concomitant]

REACTIONS (6)
  - UNRESPONSIVE TO STIMULI [None]
  - COMA [None]
  - OVERDOSE [None]
  - HYPOTENSION [None]
  - DELIRIUM [None]
  - AREFLEXIA [None]
